FAERS Safety Report 8008531-2 (Version None)
Quarter: 2011Q4

REPORT INFORMATION
  Report Type: 
  Country: None (occurrence: None)
  Receive Date: 20111227
  Receipt Date: 20111219
  Transmission Date: 20120403
  Serious: Yes (Other)
  Sender: FDA-Public Use
  Company Number: US-ROCHE-791145

PATIENT
  Sex: Female
  Weight: 47.67 kg

DRUGS (1)
  1. ACCUTANE [Suspect]
     Indication: ACNE
     Route: 065
     Dates: start: 19820101, end: 19870101

REACTIONS (8)
  - ANXIETY [None]
  - STRESS [None]
  - ARTHRITIS [None]
  - EMOTIONAL DISTRESS [None]
  - OSTEOPENIA [None]
  - COLITIS ULCERATIVE [None]
  - OSTEONECROSIS [None]
  - INFLAMMATORY BOWEL DISEASE [None]
